FAERS Safety Report 7269192-3 (Version None)
Quarter: 2011Q1

REPORT INFORMATION
  Report Type: 
  Country: None (occurrence: None)
  Receive Date: 20110119
  Receipt Date: 20100201
  Transmission Date: 20110831
  Serious: No
  Sender: FDA-Public Use
  Company Number: AEUSA201000033

PATIENT

DRUGS (1)
  1. HYPERTET [Suspect]
     Indication: PRODUCT USED FOR UNKNOWN INDICATION
     Dosage: 1X; IM
     Route: 030
     Dates: start: 20100130, end: 20100130

REACTIONS (1)
  - EXPIRED DRUG ADMINISTERED [None]
